FAERS Safety Report 6689237-9 (Version None)
Quarter: 2010Q2

REPORT INFORMATION
  Report Type: 
  Country: None (occurrence: None)
  Receive Date: 20100409
  Receipt Date: 20100326
  Transmission Date: 20101027
  Serious: Yes (Death, Life-Threatening, Hospitalization)
  Sender: FDA-Public Use
  Company Number: CLOF-1000595

PATIENT
  Age: 11 Year
  Sex: Male
  Weight: 38 kg

DRUGS (15)
  1. CLOFARABINE (CLOFARABINE) SOLUTION FOR INFUSION [Suspect]
     Indication: ACUTE LYMPHOCYTIC LEUKAEMIA
     Dosage: 50 MG, QDX5, INTRAVENOUS
     Route: 042
     Dates: start: 20090613, end: 20090617
  2. ETOPOSIDE SOLUTION FOR INFUSION [Suspect]
     Dosage: 125 MG, QDX5, INTRAVENOUS
     Route: 042
     Dates: start: 20090613, end: 20090617
  3. CYCLOPHOSPHAMIDE [Suspect]
     Dosage: 550 MG, QDX5, INTRAVENOUS
     Route: 042
     Dates: start: 20090613, end: 20090617
  4. ACETAMINOPHEN (PARCETAMOL) [Concomitant]
  5. ACYCLOVIR [Concomitant]
  6. CEFEPIME [Concomitant]
  7. DIPHENHYDRAMINE (DIPHENHYDRAMINE, SODIUM CITRATE) [Concomitant]
  8. FLUCONAZOLE [Concomitant]
  9. LORAZEPAM [Concomitant]
  10. ZOFRAN [Concomitant]
  11. SULFAMETHOXAZOLE W (SULFAMETHOXAZOLE, TRIMETHOPRIM) [Concomitant]
  12. AMIKACIN SULFATE [Concomitant]
  13. VANCOMYCIN [Concomitant]
  14. MORPHINE [Concomitant]
  15. VITAMIN K TAB [Concomitant]

REACTIONS (15)
  - ABDOMINAL DISTENSION [None]
  - ABDOMINAL PAIN [None]
  - ACIDOSIS [None]
  - ACTIVATED PARTIAL THROMBOPLASTIN TIME PROLONGED [None]
  - CAECITIS [None]
  - CAPILLARY LEAK SYNDROME [None]
  - CHILLS [None]
  - CHOLECYSTITIS [None]
  - DIARRHOEA [None]
  - FEBRILE NEUTROPENIA [None]
  - GASTRITIS [None]
  - HYPOTENSION [None]
  - PULMONARY OEDEMA [None]
  - RENAL FAILURE ACUTE [None]
  - WHITE BLOOD CELL COUNT DECREASED [None]
